FAERS Safety Report 4865048-1 (Version None)
Quarter: 2005Q4

REPORT INFORMATION
  Report Type: 
  Country: None (occurrence: None)
  Receive Date: 20051223
  Receipt Date: 20051128
  Transmission Date: 20060501
  Serious: Yes (Hospitalization)
  Sender: FDA-Public Use
  Company Number: JP-BRISTOL-MYERS SQUIBB COMPANY-13198502

PATIENT
  Age: 43 Year
  Sex: Male

DRUGS (1)
  1. MAXIPIME [Suspect]
     Indication: ARTHRITIS BACTERIAL
     Route: 041
     Dates: start: 20040514, end: 20040521

REACTIONS (2)
  - ECZEMA [None]
  - HEPATIC FUNCTION ABNORMAL [None]
